FAERS Safety Report 4705472-0 (Version None)
Quarter: 2005Q2

REPORT INFORMATION
  Report Type: 
  Country: None (occurrence: None)
  Receive Date: 20050629
  Receipt Date: 20050113
  Transmission Date: 20051028
  Serious: Yes (Hospitalization)
  Sender: FDA-Public Use
  Company Number: 200510365US

PATIENT
  Age: 34 Year
  Sex: Male
  Weight: 93 kg

DRUGS (9)
  1. BECLOMETHASONE DIPROPIONATE [Suspect]
     Indication: ASTHMA
     Dosage: 640 UG/DAY INH
     Route: 055
     Dates: start: 20040608
  2. BECLOMETHASONE DIPROPIONATE [Suspect]
     Indication: ASTHMA
  3. BECLOMETHASONE DIPROPIONATE [Suspect]
     Indication: ASTHMA
  4. BECLOMETHASONE DIPROPIONATE [Suspect]
     Indication: ASTHMA
  5. PRILOSEC [Concomitant]
  6. PROVENTIL [Concomitant]
  7. ACCOLATE [Concomitant]
  8. CLARITIN [Concomitant]
  9. IBUPROFEN [Concomitant]

REACTIONS (1)
  - PNEUMONIA [None]
